FAERS Safety Report 9505965 (Version 1)
Quarter: 2013Q1

REPORT INFORMATION
  Report Type: Spontaneous
  Country: US (occurrence: None)
  Receive Date: 20130305
  Receipt Date: 20130305
  Transmission Date: 20140127
  Serious: Yes (Hospitalization)
  Sender: FDA-Public Use
  Company Number: 100030243

PATIENT
  Age: 60 Year
  Sex: Male

DRUGS (20)
  1. DALIRESP [Suspect]
     Indication: CHRONIC OBSTRUCTIVE PULMONARY DISEASE
     Route: 048
     Dates: start: 20120501, end: 201209
  2. XANAX (ALPRAZOLAM) (ALPRAZOLAM) [Concomitant]
  3. PROTONIX (PANTOPRAZOLE SODIUM SESQUIHYDRATE) (PANTOPRAZOLE SODIUM SESQUIHYDRATE) [Concomitant]
  4. SYMBICORT (BUDESONIDE W/FORMOTEROL FUMARATE) (BUDESONIDE W/FORMOTEROL FUMARATE) [Concomitant]
  5. PROAIR HFA (SALBUTAMOL SULFATE) (SALBUTAMOL SULFATE) [Concomitant]
  6. WELLBUTRIN (BUPROPION HYDROCHLORIDE) (BUPROPION HYDROCHLORIDE) [Concomitant]
  7. COZAAR (LOSARTAN POTASSIUM) (LOSARTAN POTASSIUM) [Concomitant]
  8. PREDNISONE (PREDNISONE) (PREDNISONE) [Concomitant]
  9. CALCIUM (CALCIUM) (CALCIUM) [Concomitant]
  10. EFFEXOR (VENLAFAXINE HYDROCHLORIDE) (VENLAFAXINE HYDROCHLORIDE) [Concomitant]
  11. NITROSTAT (GLYCERYL TRINITRATE) (GLYCERYL TRINITRATE) [Concomitant]
  12. SPECTRAVITE MULTIVITAMIN (SPECTRAVITE MULTIVITAMIN) (SPECTRAVITE MULTIVITAMIN) [Concomitant]
  13. SPIRIVA (TIOTROPIUM BROMIDE) (TIOTROPIUM BROMIDE) [Concomitant]
  14. FIORICET (AXOTAL) (AXOTAL) [Concomitant]
  15. OXYGEN (OXYGEN) (OXYGEN) [Concomitant]
  16. PRILOSEC (OMEPRAZOLE) (OMEPRAZOLE) [Concomitant]
  17. BENADRYL (DIPHENHYDRAMINE) (DIPHENHYDRAMINE) [Concomitant]
  18. FLUTICASONE (FLUTICASONE) (FLUTICASONE) [Concomitant]
  19. PHRENILIN FORTE (PHRENILIN) (PHRENILIN) [Concomitant]
  20. AMITRIPTYLINE (AMITRIPTYLINE) (AMITRIPTYLINE ) [Concomitant]

REACTIONS (4)
  - Chronic obstructive pulmonary disease [None]
  - Dizziness [None]
  - Asthenia [None]
  - Fatigue [None]
